FAERS Safety Report 4341843-2 (Version None)
Quarter: 2004Q2

REPORT INFORMATION
  Report Type: 
  Country: None (occurrence: None)
  Receive Date: 20040415
  Receipt Date: 20040405
  Transmission Date: 20050107
  Serious: Yes (Hospitalization, Disabling)
  Sender: FDA-Public Use
  Company Number: 2004-114643-NL

PATIENT
  Age: 38 Year
  Sex: Male

DRUGS (3)
  1. DANAPAROID SODIUM [Suspect]
     Dates: start: 20040101, end: 20040101
  2. HEPARIN [Concomitant]
  3. ABCIXIMAB [Concomitant]

REACTIONS (4)
  - AORTIC THROMBOSIS [None]
  - DRUG HYPERSENSITIVITY [None]
  - INTRACARDIAC THROMBUS [None]
  - LEG AMPUTATION [None]
